FAERS Safety Report 17474464 (Version 1)
Quarter: 2020Q1

REPORT INFORMATION
  Report Type: Spontaneous
  Country: DE (occurrence: DE)
  Receive Date: 20200225
  Receipt Date: 20200225
  Transmission Date: 20200409
  Serious: Yes (Hospitalization, Other)
  Sender: FDA-Public Use
  Company Number: DE-SUN PHARMACEUTICAL INDUSTRIES LTD-2020RR-237504

PATIENT
  Age: 78 Year
  Sex: Male

DRUGS (10)
  1. DONEPEZIL. [Suspect]
     Active Substance: DONEPEZIL
     Indication: DEMENTIA
     Dosage: 1X5MG
     Route: 065
     Dates: start: 20200110, end: 20200122
  2. CITALOPRAM [Concomitant]
     Active Substance: CITALOPRAM HYDROBROMIDE
     Indication: PRODUCT USED FOR UNKNOWN INDICATION
     Dosage: 1X20MG
     Route: 048
  3. XARELTO [Concomitant]
     Active Substance: RIVAROXABAN
     Indication: ANTICOAGULANT THERAPY
     Dosage: 1X20MG
     Route: 048
  4. RAMIPRIL. [Concomitant]
     Active Substance: RAMIPRIL
     Indication: HYPERTENSION
     Dosage: 1X2.5MG
     Route: 048
  5. ALLOPURINOL. [Concomitant]
     Active Substance: ALLOPURINOL
     Indication: HYPERURICAEMIA
     Dosage: 1X300MG
     Route: 048
  6. PROMETHAZINE [Concomitant]
     Active Substance: PROMETHAZINE HYDROCHLORIDE
     Indication: PRODUCT USED FOR UNKNOWN INDICATION
     Dosage: 1X25MG
     Route: 048
  7. SPIRONOLACTON [Concomitant]
     Active Substance: SPIRONOLACTONE
     Indication: POLYURIA
     Dosage: 1X25MG
     Route: 048
  8. NEUPRO [Suspect]
     Active Substance: ROTIGOTINE
     Indication: PARKINSON^S DISEASE
     Dosage: UNK
     Route: 065
     Dates: start: 20200110, end: 20200122
  9. OXYCODON RET. [Concomitant]
     Indication: ANALGESIC THERAPY
     Dosage: 5 MILLIGRAM, UNK
     Route: 048
  10. TROSPIUM [Concomitant]
     Active Substance: TROSPIUM
     Indication: PRODUCT USED FOR UNKNOWN INDICATION
     Dosage: 30MG () UNK
     Route: 048

REACTIONS (8)
  - Erythema [Not Recovered/Not Resolved]
  - Rash macular [Not Recovered/Not Resolved]
  - Dermatitis allergic [Not Recovered/Not Resolved]
  - Rash [Not Recovered/Not Resolved]
  - Skin lesion [Not Recovered/Not Resolved]
  - Mucosal haemorrhage [Not Recovered/Not Resolved]
  - Skin swelling [Not Recovered/Not Resolved]
  - Stevens-Johnson syndrome [Not Recovered/Not Resolved]

NARRATIVE: CASE EVENT DATE: 20200118
